FAERS Safety Report 5973901-0 (Version None)
Quarter: 2008Q4

REPORT INFORMATION
  Report Type: 
  Country: None (occurrence: None)
  Receive Date: 20081125
  Receipt Date: 20081112
  Transmission Date: 20090506
  Serious: Yes (Death, Hospitalization, Other)
  Sender: FDA-Public Use
  Company Number: 2008AL005499

PATIENT
  Age: 76 Year
  Sex: Male
  Weight: 72.5755 kg

DRUGS (13)
  1. DIGOXIN [Suspect]
     Indication: ATRIAL FIBRILLATION
     Dosage: 0.25-0.125MG, DAILY, PO
     Route: 048
     Dates: start: 20060405, end: 20071112
  2. ATROVENT [Concomitant]
  3. TOPROL-XL [Concomitant]
  4. PROVENTIL [Concomitant]
  5. DIFLUCAN [Concomitant]
  6. DILTIAZEM [Concomitant]
  7. COUMADIN [Concomitant]
  8. NEURONTIN [Concomitant]
  9. LASIX [Concomitant]
  10. ADVAIR HFA [Concomitant]
  11. CALCIUM ACETATE [Concomitant]
  12. COLACE [Concomitant]
  13. KEFLEX [Concomitant]

REACTIONS (11)
  - ATRIAL FIBRILLATION [None]
  - BLOOD CHLORIDE DECREASED [None]
  - BLOOD CREATININE INCREASED [None]
  - BLOOD POTASSIUM INCREASED [None]
  - BLOOD SODIUM DECREASED [None]
  - BLOOD UREA INCREASED [None]
  - BLOOD UREA NITROGEN/CREATININE RATIO INCREASED [None]
  - CARDIO-RESPIRATORY ARREST [None]
  - CARDIOMYOPATHY [None]
  - DYSPNOEA [None]
  - GLOMERULAR FILTRATION RATE DECREASED [None]
